FAERS Safety Report 4923964-6 (Version None)
Quarter: 2006Q1

REPORT INFORMATION
  Report Type: 
  Country: None (occurrence: None)
  Receive Date: 20060227
  Receipt Date: 20060213
  Transmission Date: 20060701
  Serious: Yes (Hospitalization)
  Sender: FDA-Public Use
  Company Number: PR-MERCK-0602USA05384

PATIENT
  Age: 58 Year
  Sex: Male

DRUGS (3)
  1. TICLID [Concomitant]
     Route: 065
  2. LOTREL [Concomitant]
     Route: 065
  3. VIOXX [Suspect]
     Route: 048

REACTIONS (4)
  - AORTIC VALVE STENOSIS [None]
  - CAROTID ARTERY STENOSIS [None]
  - LACUNAR INFARCTION [None]
  - THROMBOSIS [None]
